FAERS Safety Report 6496361-2 (Version None)
Quarter: 2009Q4

REPORT INFORMATION
  Report Type: 
  Country: None (occurrence: None)
  Receive Date: 20091214
  Receipt Date: 20091203
  Transmission Date: 20100525
  Serious: Yes (Death, Other)
  Sender: FDA-Public Use
  Company Number: AU-GENENTECH-295265

PATIENT
  Age: 44 Year
  Sex: Male

DRUGS (7)
  1. BEVACIZUMAB [Suspect]
     Indication: NEUROENDOCRINE TUMOUR
     Dosage: 7.5 MG/KG, Q3W
     Route: 042
     Dates: start: 20050901
  2. CAPECITABINE [Suspect]
     Indication: NEUROENDOCRINE TUMOUR
     Dosage: 2000 MG, BID
     Route: 065
     Dates: start: 20060501
  3. FLUOROURACIL [Suspect]
     Indication: NEUROENDOCRINE TUMOUR
     Dosage: UNK
     Route: 065
     Dates: start: 20050901
  4. SANDOSTATIN [Suspect]
     Indication: NEUROENDOCRINE TUMOUR
     Dosage: 10 MG, 1/MONTH
     Route: 065
     Dates: start: 20050901
  5. SORAFENIB [Suspect]
     Indication: NEUROENDOCRINE TUMOUR
     Dosage: 400 MG, BID
     Route: 065
     Dates: start: 20080601
  6. MEDROXIPROGESTERONE ACETATE [Suspect]
     Indication: NEUROENDOCRINE TUMOUR
     Dosage: 160 MG, UNK
     Route: 065
     Dates: start: 20080801
  7. EVEROLIMUS [Suspect]
     Indication: NEUROENDOCRINE TUMOUR
     Dosage: 10 MG, UNK
     Route: 065
     Dates: start: 20080801

REACTIONS (5)
  - DEATH [None]
  - DISEASE PROGRESSION [None]
  - HYPERTENSION [None]
  - PALMAR-PLANTAR ERYTHRODYSAESTHESIA SYNDROME [None]
  - PROTEINURIA [None]
